FAERS Safety Report 23595368 (Version 1)
Quarter: 2024Q1

REPORT INFORMATION
  Report Type: Spontaneous
  Country: US (occurrence: US)
  Receive Date: 20240305
  Receipt Date: 20240305
  Transmission Date: 20240410
  Serious: Yes (Other)
  Sender: FDA-Public Use
  Company Number: US-ELI_LILLY_AND_COMPANY-US202310008686

PATIENT
  Age: 63 Year
  Sex: Male

DRUGS (7)
  1. SPIRONOLACTONE [Interacting]
     Active Substance: SPIRONOLACTONE
     Indication: Product used for unknown indication
  2. TIRZEPATIDE [Interacting]
     Active Substance: TIRZEPATIDE
     Indication: Weight decreased
  3. SACUBITRIL\VALSARTAN [Interacting]
     Active Substance: SACUBITRIL\VALSARTAN
     Indication: Product used for unknown indication
     Dosage: 49/51 MG TWICE DAILY
  4. CARVEDILOL [Interacting]
     Active Substance: CARVEDILOL
     Indication: Product used for unknown indication
     Dosage: DECREASED
  5. TIRZEPATIDE [Interacting]
     Active Substance: TIRZEPATIDE
     Indication: Weight decreased
     Dosage: TITRATED BY 2.5 MG/WEEK EVERY 4 WEEKS UP TO 12.5 MG ONCE WEEKLY
  6. TIRZEPATIDE [Interacting]
     Active Substance: TIRZEPATIDE
     Indication: Weight decreased
  7. CARVEDILOL [Interacting]
     Active Substance: CARVEDILOL
     Indication: Product used for unknown indication

REACTIONS (5)
  - Orthostatic hypotension [Recovering/Resolving]
  - Drug interaction [Recovered/Resolved]
  - Presyncope [Unknown]
  - Blood creatinine increased [Recovering/Resolving]
  - Heart rate increased [Recovered/Resolved]
